FAERS Safety Report 18923342 (Version 2)
Quarter: 2021Q1

REPORT INFORMATION
  Report Type: Spontaneous
  Country: US (occurrence: US)
  Receive Date: 20210222
  Receipt Date: 20210316
  Transmission Date: 20210420
  Serious: Yes (Other)
  Sender: FDA-Public Use
  Company Number: US-REDHILL BIOPHARMA-2021RDH00019

PATIENT
  Sex: Female
  Weight: 170 kg

DRUGS (8)
  1. ELIQUIS [Suspect]
     Active Substance: APIXABAN
     Dosage: 2.5 MG, (1/2 TABLET) 2X/DAY
     Dates: start: 202102
  2. HYDROCODONE [Suspect]
     Active Substance: HYDROCODONE
     Indication: PAIN
     Dosage: 7.5 MG, 3X/DAY
  3. MIRALAX [Concomitant]
     Active Substance: POLYETHYLENE GLYCOL 3350
     Dosage: ^REGULARY^
  4. HYDROCODONE [Suspect]
     Active Substance: HYDROCODONE
     Dosage: 7.5 MG, 1X/DAY BROKEN INTO LITTLE PIECES AS NEEDED
  5. MOVANTIK [Suspect]
     Active Substance: NALOXEGOL OXALATE
     Indication: CONSTIPATION
     Dosage: 25 MG, 1X/DAY ONE TIME ONLY IN THE AFTERNOON
     Route: 048
     Dates: start: 20210203, end: 20210203
  6. ELIQUIS [Suspect]
     Active Substance: APIXABAN
     Dosage: 5 MG, 2X/DAY
     Dates: end: 202102
  7. UNSPECIFIED BLOOD PRESSURE MEDICATIONS [Concomitant]
     Active Substance: UNSPECIFIED INGREDIENT
  8. LEVSIN [Concomitant]
     Active Substance: HYOSCYAMINE SULFATE
     Dosage: UNK 1 TO 2 TIMES PER WEEK

REACTIONS (9)
  - Dyschezia [Recovered/Resolved]
  - Pain [Recovered/Resolved]
  - Frequent bowel movements [Recovered/Resolved]
  - Gastrointestinal pain [Recovered/Resolved]
  - Abdominal discomfort [Recovered/Resolved]
  - Bowel movement irregularity [Recovered/Resolved]
  - Inhibitory drug interaction [Recovered/Resolved]
  - Haematochezia [Recovered/Resolved]
  - Product prescribing error [Recovered/Resolved]

NARRATIVE: CASE EVENT DATE: 2021
